FAERS Safety Report 7869212-9 (Version None)
Quarter: 2011Q4

REPORT INFORMATION
  Report Type: 
  Country: None (occurrence: None)
  Receive Date: 20111028
  Receipt Date: 20101229
  Transmission Date: 20120403
  Serious: No
  Sender: FDA-Public Use
  Company Number: US-AMGEN-USASP2010012250

PATIENT
  Age: 55 Year
  Sex: Female

DRUGS (2)
  1. ENBREL [Suspect]
     Indication: PSORIATIC ARTHROPATHY
  2. ENBREL [Suspect]
     Indication: PSORIASIS
     Dosage: 50 MG, QWK
     Dates: start: 20080101

REACTIONS (10)
  - BLOOD URINE PRESENT [None]
  - INJECTION SITE HAEMATOMA [None]
  - INJECTION SITE HAEMORRHAGE [None]
  - GAIT DISTURBANCE [None]
  - STRESS [None]
  - GALLBLADDER DISORDER [None]
  - PSORIASIS [None]
  - INCORRECT ROUTE OF DRUG ADMINISTRATION [None]
  - BACK PAIN [None]
  - INJECTION SITE PAIN [None]
